FAERS Safety Report 9858773 (Version 1)
Quarter: 2014Q1

REPORT INFORMATION
  Report Type: Spontaneous
  Country: US (occurrence: None)
  Receive Date: 20140130
  Receipt Date: 20140130
  Transmission Date: 20141002
  Serious: No
  Sender: FDA-Public Use
  Company Number: None

PATIENT
  Age: 60 Year
  Sex: Male

DRUGS (1)
  1. SOVALDI [Suspect]
     Indication: CHRONIC HEPATITIS
     Dates: start: 20140114, end: 20140120

REACTIONS (2)
  - Rash erythematous [None]
  - Skin plaque [None]
